FAERS Safety Report 18789022 (Version 1)
Quarter: 2021Q1

REPORT INFORMATION
  Report Type: Spontaneous
  Country: US (occurrence: US)
  Receive Date: 20210126
  Receipt Date: 20210126
  Transmission Date: 20210419
  Serious: Yes (Hospitalization)
  Sender: FDA-Public Use
  Company Number: None

PATIENT
  Sex: Female

DRUGS (1)
  1. GABAPENTIN   CAP [Suspect]
     Active Substance: GABAPENTIN
     Route: 048

REACTIONS (5)
  - Seizure [None]
  - Tic [None]
  - Muscle twitching [None]
  - Wrist fracture [None]
  - Speech disorder [None]
